FAERS Safety Report 22350169 (Version 1)
Quarter: 2023Q2

REPORT INFORMATION
  Report Type: Spontaneous
  Country: US (occurrence: None)
  Receive Date: 20230519
  Receipt Date: 20230519
  Transmission Date: 20230722
  Serious: Yes (Life-Threatening)
  Sender: FDA-Public Use
  Company Number: None

PATIENT
  Age: 82 Year
  Sex: Male

DRUGS (1)
  1. TIBSOVO [Suspect]
     Active Substance: IVOSIDENIB
     Indication: Acute myeloid leukaemia
     Dosage: 500 MG DAILY ORAL?
     Route: 048

REACTIONS (3)
  - Red blood cell count decreased [None]
  - Platelet count decreased [None]
  - Near death experience [None]

NARRATIVE: CASE EVENT DATE: 20230518
